FAERS Safety Report 7374014-6 (Version None)
Quarter: 2011Q1

REPORT INFORMATION
  Report Type: 
  Country: None (occurrence: None)
  Receive Date: 20110317
  Receipt Date: 20110307
  Transmission Date: 20110831
  Serious: Yes (Hospitalization)
  Sender: FDA-Public Use
  Company Number: B0705552A

PATIENT
  Age: 13 Year
  Sex: Male
  Weight: 53.0709 kg

DRUGS (10)
  1. UNKNOWN (FORMULATION UNKNOWN) (UNKNOWN) [Suspect]
     Dosage: INTRAVENOUS
     Route: 042
  2. VECURONIUM BROMIDE [Concomitant]
  3. ONDANSETRON HYDROCHLORIDE [Suspect]
  4. MEXILETINE HYDROCHLORIDE [Concomitant]
  5. NADOLOL [Concomitant]
  6. POTASSIUM SALT [Concomitant]
  7. SEVOFLURANE [Suspect]
     Indication: ANAESTHESIA
  8. BETA-BLOCKER [Concomitant]
  9. ANTICHOLINERGIC (FORMULATION UNKNOWN) (ANTICHOLINERGIC) [Suspect]
     Dosage: INTRAVENOUS
     Route: 042
  10. DESFLURANE [Suspect]
     Indication: ANAESTHESIA

REACTIONS (3)
  - PROCEDURAL COMPLICATION [None]
  - VENTRICULAR TACHYCARDIA [None]
  - VENTRICULAR EXTRASYSTOLES [None]
